FAERS Safety Report 15467413 (Version 4)
Quarter: 2019Q3

REPORT INFORMATION
  Report Type: Report from Study
  Country: CO (occurrence: CO)
  Receive Date: 20181005
  Receipt Date: 20190830
  Transmission Date: 20191004
  Serious: Yes (Death, Hospitalization, Other)
  Sender: FDA-Public Use
  Company Number: CO-ASTELLAS-2017US050417

PATIENT
  Age: 85 Year
  Sex: Male

DRUGS (4)
  1. ENDOL                              /00003801/ [Concomitant]
     Indication: ANALGESIC THERAPY
     Route: 048
     Dates: start: 20180223
  2. ENZALUTAMIDE [Suspect]
     Active Substance: ENZALUTAMIDE
     Indication: HORMONE-REFRACTORY PROSTATE CANCER
     Route: 048
     Dates: start: 20170820
  3. FUROSEMIDE. [Concomitant]
     Active Substance: FUROSEMIDE
     Indication: PRODUCT USED FOR UNKNOWN INDICATION
     Route: 065
  4. AMLODIPINE [Concomitant]
     Active Substance: AMLODIPINE BESYLATE
     Indication: PRODUCT USED FOR UNKNOWN INDICATION
     Route: 065

REACTIONS (14)
  - Pyrexia [Recovered/Resolved]
  - Implant site discharge [Not Recovered/Not Resolved]
  - Dysuria [Recovered/Resolved]
  - Neck pain [Not Recovered/Not Resolved]
  - Dry skin [Recovering/Resolving]
  - Death [Fatal]
  - Gait disturbance [Unknown]
  - Musculoskeletal pain [Not Recovered/Not Resolved]
  - Skin exfoliation [Recovering/Resolving]
  - Prostatic specific antigen increased [Not Recovered/Not Resolved]
  - Urinary tract infection [Recovered/Resolved]
  - Balance disorder [Not Recovered/Not Resolved]
  - Inflammation [Not Recovered/Not Resolved]
  - Malignant neoplasm progression [Unknown]

NARRATIVE: CASE EVENT DATE: 20171012
